FAERS Safety Report 24410080 (Version 2)
Quarter: 2024Q4

REPORT INFORMATION
  Report Type: Spontaneous
  Country: US (occurrence: US)
  Receive Date: 20241008
  Receipt Date: 20241202
  Transmission Date: 20250115
  Serious: No
  Sender: GLAXOSMITHKLINE
  Company Number: US-GLAXOSMITHKLINE-US2024099241

PATIENT
  Age: 79 Year
  Sex: Female

DRUGS (2)
  1. ZEJULA [Suspect]
     Active Substance: NIRAPARIB
     Indication: Lung carcinoma cell type unspecified stage 0
     Dosage: 200 MG, QD
     Dates: start: 20240919
  2. ZEJULA [Suspect]
     Active Substance: NIRAPARIB
     Indication: Non-small cell lung cancer

REACTIONS (4)
  - Dyspnoea exertional [Unknown]
  - Dyspnoea [Unknown]
  - Off label use [Unknown]
  - Product use in unapproved indication [Unknown]

NARRATIVE: CASE EVENT DATE: 20241001
